FAERS Safety Report 9861294 (Version 1)
Quarter: 2014Q1

REPORT INFORMATION
  Report Type: Spontaneous
  Country: AR (occurrence: AR)
  Receive Date: 20140202
  Receipt Date: 20140202
  Transmission Date: 20141002
  Serious: No
  Sender: FDA-Public Use
  Company Number: AR-ALLERGAN-1305090US

PATIENT
  Sex: Female

DRUGS (1)
  1. BOTOX [Suspect]
     Indication: SKIN WRINKLING
     Dosage: UNK
     Dates: start: 20130223, end: 20130223

REACTIONS (8)
  - Oedema [Unknown]
  - Inflammation [Unknown]
  - Nasal congestion [Unknown]
  - Nasal inflammation [Unknown]
  - Eyelid sensory disorder [Unknown]
  - Extraocular muscle paresis [Unknown]
  - Eyelid ptosis [Unknown]
  - Eyelid ptosis [Unknown]
